FAERS Safety Report 22878550 (Version 3)
Quarter: 2024Q3

REPORT INFORMATION
  Report Type: Spontaneous
  Country: JP (occurrence: JP)
  Receive Date: 20230829
  Receipt Date: 20240715
  Transmission Date: 20241016
  Serious: Yes (Disabling, Other)
  Sender: BRISTOL MYERS SQUIBB
  Company Number: JP-ONO-2023JP021322

PATIENT
  Age: 9 Decade
  Sex: Female

DRUGS (5)
  1. OPDIVO [Suspect]
     Active Substance: NIVOLUMAB
     Indication: Metastatic renal cell carcinoma
     Route: 041
     Dates: start: 20210623, end: 20211215
  2. LIPITOR [Concomitant]
     Active Substance: ATORVASTATIN CALCIUM
  3. ALFACALCIDOL [Concomitant]
     Active Substance: ALFACALCIDOL
  4. KALLIDINOGENASE [Concomitant]
     Active Substance: KALLIDINOGENASE
  5. NIACINAMIDE\PAPAVERINE HYDROCHLORIDE [Concomitant]
     Active Substance: NIACINAMIDE\PAPAVERINE HYDROCHLORIDE
     Route: 048

REACTIONS (7)
  - Vogt-Koyanagi-Harada disease [Recovering/Resolving]
  - Serous retinal detachment [Recovered/Resolved]
  - Acquired hypertrophy of the retinal pigment epithelium [Unknown]
  - Cataract [Unknown]
  - Iritis [Unknown]
  - Visual acuity reduced [Unknown]
  - Uveitis [Recovering/Resolving]

NARRATIVE: CASE EVENT DATE: 20211124
